FAERS Safety Report 9198808 (Version 1)
Quarter: 2013Q1

REPORT INFORMATION
  Report Type: Spontaneous
  Country: FR (occurrence: FR)
  Receive Date: 20130329
  Receipt Date: 20130329
  Transmission Date: 20140127
  Serious: Yes (Hospitalization)
  Sender: FDA-Public Use
  Company Number: FR-AMGEN-FRASP2013021849

PATIENT
  Age: 60 Year
  Sex: Female
  Weight: 73 kg

DRUGS (4)
  1. ENBREL [Suspect]
     Indication: PRODUCT USED FOR UNKNOWN INDICATION
     Dosage: 25 MG, 2X/WEEK
     Route: 058
     Dates: start: 200910, end: 20130307
  2. IMUREL [Suspect]
     Indication: TAKAYASU^S ARTERITIS
     Dosage: 50 MG, 1X/DAY
     Route: 048
     Dates: start: 201009, end: 201206
  3. IMUREL [Suspect]
     Dosage: 100 MG, 1X/DAY
     Route: 048
     Dates: start: 201206, end: 201211
  4. IMUREL [Suspect]
     Dosage: 50 MG, 3X/DAY
     Route: 048
     Dates: start: 201211, end: 20130307

REACTIONS (1)
  - Pancytopenia [Recovering/Resolving]
